FAERS Safety Report 12463900 (Version 7)
Quarter: 2020Q3

REPORT INFORMATION
  Report Type: Spontaneous
  Country: IT (occurrence: IT)
  Receive Date: 20160614
  Receipt Date: 20200107
  Transmission Date: 20201105
  Serious: Yes (Other)
  Sender: FDA-Public Use
  Company Number: PHHY2016IT080287

PATIENT
  Age: 86 Year
  Sex: Female

DRUGS (21)
  1. ETORICOXIB. [Suspect]
     Active Substance: ETORICOXIB
     Indication: SPINAL PAIN
     Route: 065
  2. NIMESULIDE [Suspect]
     Active Substance: NIMESULIDE
     Indication: SPINAL PAIN
     Route: 065
  3. HYDROMORPHONE [Concomitant]
     Active Substance: HYDROMORPHONE
     Route: 065
  4. KETOROLAC [Suspect]
     Active Substance: KETOROLAC TROMETHAMINE
     Indication: SPINAL PAIN
     Route: 065
  5. TRAMADOL. [Suspect]
     Active Substance: TRAMADOL
     Indication: BACK PAIN
  6. OXYCODONE HYDROCHLORIDE. [Suspect]
     Active Substance: OXYCODONE HYDROCHLORIDE
     Indication: SPINAL PAIN
     Route: 065
  7. DULOXETINE. [Concomitant]
     Active Substance: DULOXETINE
     Route: 065
  8. DICLOFENAC [Suspect]
     Active Substance: DICLOFENAC
     Indication: SPINAL PAIN
     Route: 065
  9. ETORICOXIB. [Suspect]
     Active Substance: ETORICOXIB
     Indication: BACK PAIN
     Route: 065
  10. OXYCODONE HYDROCHLORIDE. [Suspect]
     Active Substance: OXYCODONE HYDROCHLORIDE
     Indication: SPINAL PAIN
     Route: 065
  11. HYDROMORPHONE [Concomitant]
     Active Substance: HYDROMORPHONE
     Indication: SPINAL PAIN
     Route: 065
  12. NIMESULIDE [Suspect]
     Active Substance: NIMESULIDE
     Indication: BACK PAIN
  13. PREGABALIN. [Concomitant]
     Active Substance: PREGABALIN
     Indication: SPINAL PAIN
     Route: 065
  14. PREGABALIN. [Concomitant]
     Active Substance: PREGABALIN
     Indication: SPINAL PAIN
     Route: 065
  15. TRAMADOL. [Suspect]
     Active Substance: TRAMADOL
     Indication: SPINAL PAIN
     Route: 065
  16. ETORICOXIB. [Suspect]
     Active Substance: ETORICOXIB
     Indication: SPINAL PAIN
  17. HYDROMORPHONE [Concomitant]
     Active Substance: HYDROMORPHONE
     Indication: SPINAL PAIN
     Route: 065
  18. PREGABALIN. [Concomitant]
     Active Substance: PREGABALIN
     Route: 065
  19. DULOXETINE. [Concomitant]
     Active Substance: DULOXETINE
     Indication: SPINAL PAIN
     Route: 065
  20. KETOROLAC [Suspect]
     Active Substance: KETOROLAC TROMETHAMINE
     Indication: BACK PAIN
     Route: 065
  21. DULOXETINE. [Concomitant]
     Active Substance: DULOXETINE
     Indication: SPINAL PAIN
     Route: 065

REACTIONS (6)
  - Blood creatinine increased [Recovered/Resolved]
  - Drug abuse [Unknown]
  - Speech disorder [Recovered/Resolved]
  - Iron deficiency anaemia [Recovered/Resolved]
  - Blood urea increased [Recovered/Resolved]
  - Disorientation [Recovered/Resolved]
